FAERS Safety Report 23831648 (Version 1)
Quarter: 2024Q2

REPORT INFORMATION
  Report Type: Spontaneous
  Country: US (occurrence: None)
  Receive Date: 20240507
  Receipt Date: 20240507
  Transmission Date: 20240716
  Serious: Yes (Death)
  Sender: FDA-Public Use
  Company Number: None

PATIENT
  Age: 88 Year
  Sex: Female
  Weight: 60.48 kg

DRUGS (21)
  1. REVLIMID [Suspect]
     Active Substance: LENALIDOMIDE
     Indication: Plasma cell myeloma
     Dosage: FREQUENCY : DAILY;?
     Route: 048
     Dates: start: 20240418
  2. ACYCLOVIR [Concomitant]
     Active Substance: ACYCLOVIR
  3. allopurinol 100 mg table [Concomitant]
  4. Calcium-600 600 mg [Concomitant]
  5. clobetasol 0.05 % scalp solution [Concomitant]
  6. cephalexin 500 mg tablet [Concomitant]
  7. DEXAMETHASONE [Concomitant]
     Active Substance: DEXAMETHASONE
  8. DEXAMETHASONE [Concomitant]
     Active Substance: DEXAMETHASONE
  9. gabapentin 600 mg tablet [Concomitant]
  10. iron 325 mg (65 mg [Concomitant]
  11. LISINOPRIL [Concomitant]
     Active Substance: LISINOPRIL
  12. magnesium 200 mg [Concomitant]
  13. multivitamin oral [Concomitant]
  14. Omega-3 350 mg-235 mg-90 mg-597 mg capsule,delayed [Concomitant]
  15. ondansetron 8 mg disintegrating tablet [Concomitant]
  16. PRAVASTATIN [Concomitant]
     Active Substance: PRAVASTATIN
  17. SINGULAIR [Concomitant]
     Active Substance: MONTELUKAST SODIUM
  18. Vitamin B-12 50 mcg [Concomitant]
  19. Vitamin D3 50 mcg [Concomitant]
  20. ZOMETA [Concomitant]
     Active Substance: ZOLEDRONIC ACID
  21. Triple Tx DRd:Darzalex FasPro (daratumumab hyaluronidase-fihj) 1,800mg [Concomitant]

REACTIONS (1)
  - Death [None]

NARRATIVE: CASE EVENT DATE: 20240507
